FAERS Safety Report 5244322-3 (Version None)
Quarter: 2007Q1

REPORT INFORMATION
  Report Type: 
  Country: None (occurrence: None)
  Receive Date: 20070222
  Receipt Date: 20070215
  Transmission Date: 20070707
  Serious: Yes (Hospitalization)
  Sender: FDA-Public Use
  Company Number: FR-BRISTOL-MYERS SQUIBB COMPANY-13141460

PATIENT
  Age: 11 Month
  Sex: Female
  Weight: 6 kg

DRUGS (3)
  1. BRISTOPEN INJ 1 G [Suspect]
     Indication: ENDOCARDITIS
     Dosage: IV AND ORAL GIVEN IN JUL-2005 FOR A TOTAL OF 15 DAYS THEN 21-AUG-2005 STARTED 1170 MG/DAY IV
     Route: 042
     Dates: start: 20050701, end: 20050912
  2. BRISTOPEN INJ 1 G [Suspect]
     Indication: STAPHYLOCOCCAL IMPETIGO
     Dosage: IV AND ORAL GIVEN IN JUL-2005 FOR A TOTAL OF 15 DAYS THEN 21-AUG-2005 STARTED 1170 MG/DAY IV
     Route: 042
     Dates: start: 20050701, end: 20050912
  3. GENTAMICIN SULFATE [Concomitant]
     Dates: start: 20050821, end: 20050905

REACTIONS (8)
  - ALANINE AMINOTRANSFERASE INCREASED [None]
  - ASPARTATE AMINOTRANSFERASE INCREASED [None]
  - CYTOLYTIC HEPATITIS [None]
  - EOSINOPHILIA [None]
  - RASH ERYTHEMATOUS [None]
  - RASH VESICULAR [None]
  - SKIN EXFOLIATION [None]
  - TOXIC SKIN ERUPTION [None]
